FAERS Safety Report 19376695 (Version 2)
Quarter: 2021Q3

REPORT INFORMATION
  Report Type: Spontaneous
  Country: GB (occurrence: GB)
  Receive Date: 20210604
  Receipt Date: 20210726
  Transmission Date: 20211014
  Serious: Yes (Other)
  Sender: FDA-Public Use
  Company Number: GB-GLAXOSMITHKLINE-GB2021119844

PATIENT
  Age: 30 Year
  Sex: Male
  Weight: 65 kg

DRUGS (2)
  1. PFIZER?BIONTECH COVID?19 VACCINE [Suspect]
     Active Substance: TOZINAMERAN
     Indication: PRODUCT USED FOR UNKNOWN INDICATION
     Dosage: UNK, (DOSE 1)
     Route: 065
     Dates: start: 20210529
  2. BECLOMETHASONE DIPROPIONATE [Suspect]
     Active Substance: BECLOMETHASONE DIPROPIONATE
     Indication: PRODUCT USED FOR UNKNOWN INDICATION
     Dosage: UNK
     Route: 065

REACTIONS (11)
  - Headache [Unknown]
  - Swelling [Recovered/Resolved]
  - Hypersensitivity [Unknown]
  - Fatigue [Unknown]
  - Pyrexia [Unknown]
  - Pain in extremity [Unknown]
  - Lip discolouration [Unknown]
  - Paraesthesia [Recovered/Resolved]
  - Pain [Unknown]
  - Paraesthesia oral [Unknown]
  - Lip swelling [Recovering/Resolving]

NARRATIVE: CASE EVENT DATE: 20210530
